FAERS Safety Report 9910987 (Version 2)
Quarter: 2014Q1

REPORT INFORMATION
  Report Type: Spontaneous
  Country: US (occurrence: US)
  Receive Date: 20140219
  Receipt Date: 20140219
  Transmission Date: 20141002
  Serious: No
  Sender: FDA-Public Use
  Company Number: US-GILEAD-2012-0056285

PATIENT
  Sex: Female

DRUGS (2)
  1. LETAIRIS [Suspect]
     Indication: PRODUCT USED FOR UNKNOWN INDICATION
     Dosage: 10 MG, UNK
     Route: 048
     Dates: start: 20111025
  2. TYVASO [Concomitant]

REACTIONS (5)
  - Cough [Unknown]
  - Throat irritation [Unknown]
  - Laryngeal pain [Unknown]
  - Dyspnoea [Unknown]
  - Headache [Unknown]
